FAERS Safety Report 5007851-3 (Version None)
Quarter: 2006Q2

REPORT INFORMATION
  Report Type: 
  Country: None (occurrence: None)
  Receive Date: 20060403
  Receipt Date: 20060106
  Transmission Date: 20061013
  Serious: Yes (Hospitalization)
  Sender: FDA-Public Use
  Company Number: 2006EN000043

PATIENT
  Age: 3 Year
  Sex: Male

DRUGS (1)
  1. ONCASPAR [Suspect]
     Indication: ACUTE LYMPHOCYTIC LEUKAEMIA
     Dosage: 1525 IU;X1;IM
     Route: 030
     Dates: start: 20051109, end: 20051109

REACTIONS (5)
  - ANAPHYLACTIC REACTION [None]
  - ORAL PRURITUS [None]
  - RESPIRATORY DISTRESS [None]
  - SWELLING FACE [None]
  - THROAT IRRITATION [None]
